FAERS Safety Report 12797864 (Version 1)
Quarter: 2016Q3

REPORT INFORMATION
  Report Type: Spontaneous
  Country: US (occurrence: US)
  Receive Date: 20160930
  Receipt Date: 20160930
  Transmission Date: 20161109
  Serious: No
  Sender: FDA-Public Use
  Company Number: US-LUPIN PHARMACEUTICALS INC.-E2B_00004538

PATIENT
  Sex: Female

DRUGS (1)
  1. CEPHALEXIN FOR ORAL SUSPENSION USP 125 MG/5 ML [Suspect]
     Active Substance: CEPHALEXIN
     Indication: URINARY TRACT INFECTION
     Dosage: 2 ML
     Dates: start: 20151014

REACTIONS (2)
  - No adverse event [Unknown]
  - Drug administration error [Unknown]
